FAERS Safety Report 19047270 (Version 1)
Quarter: 2021Q1

REPORT INFORMATION
  Report Type: Spontaneous
  Country: US (occurrence: US)
  Receive Date: 20210323
  Receipt Date: 20210323
  Transmission Date: 20210420
  Serious: No
  Sender: FDA-Public Use
  Company Number: US-PFIZER INC-2021298585

PATIENT
  Sex: Female

DRUGS (1)
  1. METHOTREXATE SODIUM. [Suspect]
     Active Substance: METHOTREXATE SODIUM
     Dosage: 0.8 MG, SINGLE
     Route: 030
     Dates: start: 20210224, end: 20210224

REACTIONS (7)
  - Nausea [Unknown]
  - Pain [Unknown]
  - Product use issue [Unknown]
  - Ventricular extrasystoles [Unknown]
  - Palpitations [Unknown]
  - Tachycardia [Unknown]
  - Off label use [Unknown]

NARRATIVE: CASE EVENT DATE: 20210224
